FAERS Safety Report 20490442 (Version 1)
Quarter: 2022Q1

REPORT INFORMATION
  Report Type: Spontaneous
  Country: US (occurrence: None)
  Receive Date: 20220217
  Receipt Date: 20220217
  Transmission Date: 20220423
  Serious: Yes (Death)
  Sender: FDA-Public Use
  Company Number: None

PATIENT
  Age: 78 Year
  Sex: Male
  Weight: 82.55 kg

DRUGS (23)
  1. CAPECITABINE [Suspect]
     Active Substance: CAPECITABINE
     Indication: Gastric cancer
     Dosage: FREQUENCY : EVERY 12 HOURS;?
     Route: 048
  2. FAMOTIDINE [Concomitant]
     Active Substance: FAMOTIDINE
  3. FINASTERIDE [Concomitant]
     Active Substance: FINASTERIDE
  4. ZOFRAN [Concomitant]
     Active Substance: ONDANSETRON HYDROCHLORIDE
  5. PROCHLORPERAZINE [Concomitant]
     Active Substance: PROCHLORPERAZINE
  6. ZINC [Concomitant]
     Active Substance: ZINC
  7. VITAMIN D3 [Concomitant]
     Active Substance: CHOLECALCIFEROL
  8. TAMSULOSIN [Concomitant]
     Active Substance: TAMSULOSIN
  9. TAMSULOSIN [Concomitant]
     Active Substance: TAMSULOSIN
  10. SYNJARDY [Concomitant]
     Active Substance: EMPAGLIFLOZIN\METFORMIN HYDROCHLORIDE
  11. GABAPENTIN [Concomitant]
     Active Substance: GABAPENTIN
  12. FLUOXETINE [Concomitant]
     Active Substance: FLUOXETINE HYDROCHLORIDE
  13. ASPIRIN [Concomitant]
     Active Substance: ASPIRIN
  14. ZYRTEC [Concomitant]
     Active Substance: CETIRIZINE HYDROCHLORIDE
  15. POTASSIUM [Concomitant]
     Active Substance: POTASSIUM
  16. FUROSEMIDE [Concomitant]
     Active Substance: FUROSEMIDE
  17. PRESERVISON [Concomitant]
  18. MIRALAX [Concomitant]
     Active Substance: POLYETHYLENE GLYCOL 3350
  19. SOLIQUA 100/33 [Concomitant]
     Active Substance: INSULIN GLARGINE\LIXISENATIDE
  20. MELATONIN [Concomitant]
     Active Substance: MELATONIN
  21. SUCRALFATE [Concomitant]
     Active Substance: SUCRALFATE
  22. IMMUNE DAILY DEFENSE [Concomitant]
  23. OPDIVO IV SOLUTION [Concomitant]

REACTIONS (1)
  - Death [None]
